FAERS Safety Report 9785431 (Version 1)
Quarter: 2013Q4

REPORT INFORMATION
  Report Type: Spontaneous
  Country: US (occurrence: US)
  Receive Date: 20131227
  Receipt Date: 20131227
  Transmission Date: 20140711
  Serious: Yes (Other)
  Sender: FDA-Public Use
  Company Number: US-ASTRAZENECA-2013SE93083

PATIENT
  Age: 73 Year
  Sex: Female

DRUGS (3)
  1. BRILINTA [Suspect]
     Route: 048
  2. XARELTO [Concomitant]
  3. ASA [Concomitant]

REACTIONS (3)
  - Atrial fibrillation [Unknown]
  - Gastrointestinal haemorrhage [Unknown]
  - Rectal haemorrhage [Unknown]
